FAERS Safety Report 17845410 (Version 1)
Quarter: 2020Q2

REPORT INFORMATION
  Report Type: Spontaneous
  Country: GB (occurrence: GB)
  Receive Date: 20200601
  Receipt Date: 20200601
  Transmission Date: 20200714
  Serious: Yes (Other)
  Sender: FDA-Public Use
  Company Number: GB-MYLANLABS-2020M1052571

PATIENT
  Age: 96 Year
  Sex: Female
  Weight: 80 kg

DRUGS (6)
  1. THEICAL D3 [Concomitant]
     Dosage: 1 DOSAGE FORM, QD
     Dates: start: 20200203
  2. CLARITHROMYCIN. [Suspect]
     Active Substance: CLARITHROMYCIN
     Indication: PRODUCT USED FOR UNKNOWN INDICATION
     Dosage: 250MG/5ML
     Route: 065
     Dates: start: 20200511
  3. PARACETAMOL [Concomitant]
     Active Substance: ACETAMINOPHEN
     Dosage: 1 -2 EVERY 4-6 HOURS. NO MORE THAN 8 A DAY
     Dates: start: 20160307
  4. FUROSEMIDE. [Concomitant]
     Active Substance: FUROSEMIDE
     Dosage: 1 IN THE MORNING AND ONE AT LUNCHTIME
     Dates: start: 20160414
  5. BISOPROLOL [Concomitant]
     Active Substance: BISOPROLOL
     Dosage: 1 DOSAGE FORM, QD
     Dates: start: 20140917
  6. PREDNISOLONE. [Concomitant]
     Active Substance: PREDNISOLONE
     Dosage: EACH MORNING
     Dates: start: 20140917

REACTIONS (2)
  - Lip swelling [Recovered/Resolved]
  - Mouth swelling [Recovered/Resolved]

NARRATIVE: CASE EVENT DATE: 20200511
